FAERS Safety Report 20697918 (Version 1)
Quarter: 2022Q2

REPORT INFORMATION
  Report Type: Spontaneous
  Country: US (occurrence: US)
  Receive Date: 20220412
  Receipt Date: 20220412
  Transmission Date: 20220721
  Serious: Yes (Other)
  Sender: FDA-Public Use
  Company Number: US-AUROBINDO-AUR-APL-2022-011546

PATIENT
  Age: 10 Year
  Sex: Female

DRUGS (10)
  1. ACYCLOVIR [Suspect]
     Active Substance: ACYCLOVIR
     Indication: Herpes simplex
     Dosage: UNK
     Route: 065
  2. CIPROFLOXACIN [Suspect]
     Active Substance: CIPROFLOXACIN
     Indication: Pharyngitis
     Dosage: UNK
     Route: 065
  3. CYCLOPHOSPHAMIDE [Suspect]
     Active Substance: CYCLOPHOSPHAMIDE
     Indication: Acute graft versus host disease
     Dosage: 50 MILLIGRAM/KILOGRAM, ONCE A DAY
     Route: 065
  4. MEROPENEM [Suspect]
     Active Substance: MEROPENEM
     Indication: Pharyngitis
     Dosage: UNK
     Route: 065
  5. VANCOMYCIN [Suspect]
     Active Substance: VANCOMYCIN
     Indication: Pharyngitis
     Dosage: UNK
     Route: 065
  6. VORICONAZOLE [Suspect]
     Active Substance: VORICONAZOLE
     Indication: Herpes simplex
     Dosage: UNK
     Route: 065
  7. AMPHOTERICIN B [Suspect]
     Active Substance: AMPHOTERICIN B
     Indication: Antifungal treatment
     Dosage: UNK
     Route: 065
  8. PENTAMIDINE [Suspect]
     Active Substance: PENTAMIDINE
     Indication: Antifungal prophylaxis
     Dosage: UNK
     Route: 065
  9. POSACONAZOLE [Suspect]
     Active Substance: POSACONAZOLE
     Indication: Antifungal treatment
     Dosage: UNK
     Route: 065
  10. CYCLOSPORINE [Suspect]
     Active Substance: CYCLOSPORINE
     Indication: Acute graft versus host disease
     Dosage: UNK
     Route: 065

REACTIONS (2)
  - Acute kidney injury [Unknown]
  - Fungal pharyngitis [Unknown]
